FAERS Safety Report 6021425-7 (Version None)
Quarter: 2008Q4

REPORT INFORMATION
  Report Type: 
  Country: None (occurrence: None)
  Receive Date: 20081229
  Receipt Date: 20081222
  Transmission Date: 20090506
  Serious: Yes (Life-Threatening, Hospitalization)
  Sender: FDA-Public Use
  Company Number: D0059991A

PATIENT
  Age: 75 Year
  Sex: Female
  Weight: 90 kg

DRUGS (1)
  1. ARIXTRA [Suspect]
     Indication: THROMBOSIS PROPHYLAXIS
     Dosage: 1UNIT PER DAY
     Route: 058
     Dates: start: 20081008

REACTIONS (3)
  - ANAPHYLACTIC SHOCK [None]
  - PRURITUS [None]
  - URTICARIA [None]
